FAERS Safety Report 4443484-5 (Version None)
Quarter: 2004Q3

REPORT INFORMATION
  Report Type: 
  Country: None (occurrence: None)
  Receive Date: 20040901
  Receipt Date: 20040817
  Transmission Date: 20050211
  Serious: Yes (Other)
  Sender: FDA-Public Use
  Company Number: 2004-DE-04416GD

PATIENT
  Sex: Male

DRUGS (6)
  1. PERSANTIN [Suspect]
     Indication: CARDIAC VALVE REPLACEMENT COMPLICATION
  2. PERSANTIN [Suspect]
     Indication: PROPHYLAXIS
  3. ACETYLSALICYLIC ACID [Suspect]
     Indication: CARDIAC VALVE REPLACEMENT COMPLICATION
  4. ACETYLSALICYLIC ACID [Suspect]
     Indication: PROPHYLAXIS
  5. WARFARIN (WARFARIN) [Suspect]
     Indication: CARDIAC VALVE REPLACEMENT COMPLICATION
  6. WARFARIN (WARFARIN) [Suspect]
     Indication: PROPHYLAXIS

REACTIONS (4)
  - ANTIPHOSPHOLIPID SYNDROME [None]
  - CARDIAC VALVE REPLACEMENT COMPLICATION [None]
  - CARDIOLIPIN ANTIBODY POSITIVE [None]
  - TREATMENT NONCOMPLIANCE [None]
